FAERS Safety Report 10307457 (Version 1)
Quarter: 2014Q3

REPORT INFORMATION
  Report Type: Spontaneous
  Country: US (occurrence: None)
  Receive Date: 20140714
  Receipt Date: 20140714
  Transmission Date: 20150326
  Serious: Yes (Disabling, Other)
  Sender: FDA-Public Use
  Company Number: None

PATIENT
  Age: 40 Year

DRUGS (2)
  1. NYSTATIN. [Suspect]
     Active Substance: NYSTATIN
     Indication: TONGUE DISCOLOURATION
     Dosage: 5-7 ML, THREE TIMES A DAY  TAKEN BY MOUTH
     Route: 048
     Dates: start: 20131220, end: 20131225
  2. NYSTATIN. [Suspect]
     Active Substance: NYSTATIN
     Indication: TONGUE COATED
     Dosage: 5-7 ML, THREE TIMES A DAY  TAKEN BY MOUTH
     Route: 048
     Dates: start: 20131220, end: 20131225

REACTIONS (7)
  - Incorrect dose administered [None]
  - Tachycardia [None]
  - Impaired work ability [None]
  - Hypertension [None]
  - Irritable bowel syndrome [None]
  - Weight decreased [None]
  - Drug hypersensitivity [None]

NARRATIVE: CASE EVENT DATE: 20131225
